FAERS Safety Report 19356957 (Version 8)
Quarter: 2022Q2

REPORT INFORMATION
  Report Type: Report from Study
  Country: US (occurrence: US)
  Receive Date: 20210601
  Receipt Date: 20220512
  Transmission Date: 20220720
  Serious: No
  Sender: FDA-Public Use
  Company Number: NVSC2021US116547

PATIENT
  Sex: Female

DRUGS (2)
  1. ENTRESTO [Suspect]
     Active Substance: SACUBITRIL\VALSARTAN
     Indication: Product used for unknown indication
     Dosage: 50 MG, (24/26MG) BID
     Route: 048
     Dates: start: 20210424
  2. SEMAGLUTIDE [Concomitant]
     Active Substance: SEMAGLUTIDE
     Indication: Cardiac disorder
     Dosage: UNK UNK, UNKNOWN
     Route: 065

REACTIONS (10)
  - Dyspepsia [Unknown]
  - Insomnia [Unknown]
  - Weight fluctuation [Unknown]
  - Joint injury [Unknown]
  - Arthralgia [Unknown]
  - Dyspnoea exertional [Unknown]
  - Fatigue [Unknown]
  - Cough [Unknown]
  - Product dose omission issue [Unknown]
  - Drug ineffective [Unknown]
